FAERS Safety Report 6502559-7 (Version None)
Quarter: 2009Q4

REPORT INFORMATION
  Report Type: 
  Country: None (occurrence: None)
  Receive Date: 20091217
  Receipt Date: 20091209
  Transmission Date: 20100525
  Serious: No
  Sender: FDA-Public Use
  Company Number: US-B.I. PHARMACEUTICALS,INC./RIDGEFIELD-2009-BP-14197BP

PATIENT
  Age: 75 Year
  Sex: Female

DRUGS (3)
  1. CATAPRES [Suspect]
     Indication: HYPERTENSION
     Dosage: 0.6 MG
     Route: 048
     Dates: start: 20000101
  2. LOTREL [Suspect]
     Indication: HYPERTENSION
  3. HUMALOG [Suspect]
     Indication: TYPE 1 DIABETES MELLITUS

REACTIONS (4)
  - DRY MOUTH [None]
  - HEADACHE [None]
  - HYPOGLYCAEMIA [None]
  - SOMNOLENCE [None]
